FAERS Safety Report 17568284 (Version 1)
Quarter: 2020Q1

REPORT INFORMATION
  Report Type: Spontaneous
  Country: PK (occurrence: PK)
  Receive Date: 20200320
  Receipt Date: 20200320
  Transmission Date: 20200409
  Serious: Yes (Hospitalization, Other)
  Sender: FDA-Public Use
  Company Number: PK-SA-2020SA067707

PATIENT
  Sex: Female

DRUGS (6)
  1. LOWPLAT [Concomitant]
  2. MORCET [Concomitant]
  3. VISTARIL [HYDROXYZINE HYDROCHLORIDE] [Concomitant]
  4. AMARYL [Suspect]
     Active Substance: GLIMEPIRIDE
     Indication: HYPERGLYCAEMIA
     Dosage: UNK UNK, BID, 1+ 3 MG
     Route: 048
     Dates: start: 20180101, end: 20200305
  5. NEBIX [Concomitant]
  6. X-PLENDED [Concomitant]

REACTIONS (4)
  - Hyperglycaemia [Unknown]
  - Loss of consciousness [Recovering/Resolving]
  - Syncope [Unknown]
  - Condition aggravated [Unknown]

NARRATIVE: CASE EVENT DATE: 20200305
